FAERS Safety Report 5083089-9 (Version None)
Quarter: 2006Q3

REPORT INFORMATION
  Report Type: 
  Country: None (occurrence: None)
  Receive Date: 20060814
  Receipt Date: 20060802
  Transmission Date: 20061208
  Serious: Yes (Life-Threatening, Hospitalization)
  Sender: FDA-Public Use
  Company Number: 2006094736

PATIENT
  Age: 22 Year
  Sex: Male
  Weight: 74 kg

DRUGS (4)
  1. ZOLOFT [Suspect]
     Indication: DEPRESSION
     Dosage: ORAL
     Route: 048
  2. TRAMADOL HCL [Suspect]
     Indication: SENSORY DISTURBANCE
     Dosage: 200 MG, ORAL
     Route: 048
     Dates: start: 20060404
  3. CEPADEX (DEXTROPROPOXYPHENE HYDROCHLORIDE, PARACETAMOL) [Concomitant]
  4. DICLOFENAC SODIUM [Concomitant]

REACTIONS (2)
  - SYNCOPE [None]
  - TONIC CONVULSION [None]
